FAERS Safety Report 8788855 (Version 2)
Quarter: 2013Q4

REPORT INFORMATION
  Report Type: Spontaneous
  Country: US (occurrence: US)
  Receive Date: 20120916
  Receipt Date: 20131031
  Transmission Date: 20140711
  Serious: Yes (Other)
  Sender: FDA-Public Use
  Company Number: US-009507513-1209USA004046

PATIENT
  Sex: Male

DRUGS (6)
  1. ISENTRESS [Suspect]
     Route: 048
  2. NORVIR [Suspect]
     Route: 048
  3. COPEGUS [Suspect]
     Route: 048
  4. REYATAZ [Suspect]
     Route: 048
  5. TELAPREVIR [Suspect]
     Route: 048
  6. PEGINTERFERON ALFA-2A [Suspect]
     Route: 058

REACTIONS (8)
  - Pruritus [Unknown]
  - Decreased appetite [Unknown]
  - Dyspnoea exertional [Unknown]
  - Vertigo [Unknown]
  - Anaemia [Unknown]
  - Fatigue [Unknown]
  - Rash generalised [Unknown]
  - Nausea [Unknown]
